FAERS Safety Report 6327019-8 (Version None)
Quarter: 2009Q3

REPORT INFORMATION
  Report Type: 
  Country: None (occurrence: None)
  Receive Date: 20090825
  Receipt Date: 20090813
  Transmission Date: 20100115
  Serious: Yes (Other)
  Sender: FDA-Public Use
  Company Number: ES-PFIZER INC-2009254163

PATIENT
  Age: 28 Year

DRUGS (1)
  1. TOVIAZ [Suspect]
     Indication: NEUROGENIC BLADDER
     Dosage: 8 MG, UNK
     Route: 048
     Dates: start: 20090127

REACTIONS (2)
  - CYANOSIS [None]
  - VASCULITIS [None]
